FAERS Safety Report 8901158 (Version 2)
Quarter: 2012Q4

REPORT INFORMATION
  Report Type: 
  Country: JP (occurrence: JP)
  Receive Date: 20121109
  Receipt Date: 20121119
  Transmission Date: 20130627
  Serious: Yes (Death)
  Sender: FDA-Public Use
  Company Number: JP-UCBSA-070224

PATIENT
  Age: 68 Year
  Sex: Male

DRUGS (2)
  1. E KEPPRA [Suspect]
     Indication: TEMPORAL LOBE EPILEPSY
     Route: 048
  2. TOPINA [Concomitant]
     Dosage: DAILY DOSE:100 MG
     Route: 048

REACTIONS (2)
  - Sudden unexplained death in epilepsy [Fatal]
  - Somnolence [Recovered/Resolved]
